FAERS Safety Report 11607597 (Version 1)
Quarter: 2015Q3

REPORT INFORMATION
  Report Type: Spontaneous
  Country: US (occurrence: US)
  Receive Date: 20150916
  Receipt Date: 20150916
  Transmission Date: 20151125
  Serious: No
  Sender: FDA-Public Use
  Company Number: US-ELI_LILLY_AND_COMPANY-US201401002175

PATIENT
  Age: 74 Year
  Sex: Female

DRUGS (6)
  1. HUMALOG [Suspect]
     Active Substance: INSULIN LISPRO
     Dosage: 8 U, BID
  2. HUMALOG [Suspect]
     Active Substance: INSULIN LISPRO
     Indication: DIABETES MELLITUS
     Dosage: 7 U, BID
     Route: 065
     Dates: start: 201306
  3. HUMALOG [Suspect]
     Active Substance: INSULIN LISPRO
     Dosage: 7 U, BID
     Route: 065
  4. HUMALOG [Suspect]
     Active Substance: INSULIN LISPRO
     Dosage: 7 U, BID
     Route: 065
  5. LANTUS [Concomitant]
     Active Substance: INSULIN GLARGINE
     Dosage: 22 U, EACH EVENING
  6. LANTUS [Concomitant]
     Active Substance: INSULIN GLARGINE
     Dosage: 24 U, EACH EVENING

REACTIONS (7)
  - Asthenia [Unknown]
  - Cough [Recovering/Resolving]
  - Visual impairment [Unknown]
  - Injury associated with device [Unknown]
  - Glycosylated haemoglobin increased [Unknown]
  - Nasopharyngitis [Unknown]
  - Blood glucose increased [Unknown]

NARRATIVE: CASE EVENT DATE: 201311
